FAERS Safety Report 16431291 (Version 1)
Quarter: 2019Q2

REPORT INFORMATION
  Report Type: Report from Study
  Country: IT (occurrence: IT)
  Receive Date: 20190614
  Receipt Date: 20190614
  Transmission Date: 20190711
  Serious: Yes (Hospitalization)
  Sender: FDA-Public Use
  Company Number: IT-ASTRAZENECA-2019SE84449

PATIENT
  Age: 66 Year
  Sex: Male

DRUGS (4)
  1. CIPROFLOXACIN. [Interacting]
     Active Substance: CIPROFLOXACIN
     Dosage: UNK
     Route: 065
  2. ZAFIRLUKAST. [Interacting]
     Active Substance: ZAFIRLUKAST
     Dosage: UNK
     Route: 048
  3. WARFARIN [Interacting]
     Active Substance: WARFARIN
     Indication: HEART VALVE REPLACEMENT
     Dosage: UNK
     Route: 048
  4. OMEPRAZOLE. [Suspect]
     Active Substance: OMEPRAZOLE
     Dosage: UNK
     Route: 048

REACTIONS (4)
  - Melaena [Not Recovered/Not Resolved]
  - Labelled drug-drug interaction medication error [Unknown]
  - Anaemia [Not Recovered/Not Resolved]
  - Gastrointestinal haemorrhage [Not Recovered/Not Resolved]
